FAERS Safety Report 9319133 (Version 1)
Quarter: 2013Q2

REPORT INFORMATION
  Report Type: Spontaneous
  Country: US (occurrence: None)
  Receive Date: 20130523
  Receipt Date: 20130523
  Transmission Date: 20140414
  Serious: Yes (Life-Threatening, Other)
  Sender: FDA-Public Use
  Company Number: 2013PL000073

PATIENT
  Age: 46 Year
  Sex: Male
  Weight: 85.1 kg

DRUGS (5)
  1. PROLEUKIN [Suspect]
     Indication: METASTATIC MALIGNANT MELANOMA
     Dosage: 59.3 MIU;2 DF
     Route: 042
     Dates: start: 20130404, end: 20130405
  2. CYTOXAN [Concomitant]
  3. FLUDARABINE [Concomitant]
  4. TOTAL BODY IRRADIATION [Concomitant]
  5. TUMOR INFILTRATING LYMPHOCYTES [Concomitant]

REACTIONS (12)
  - Left ventricular dysfunction [None]
  - Cytokine storm [None]
  - Oliguria [None]
  - Mental status changes [None]
  - Cardiomyopathy [None]
  - Hypotension [None]
  - Circulatory collapse [None]
  - Renal failure acute [None]
  - Acidosis [None]
  - Hypocalcaemia [None]
  - Diastolic dysfunction [None]
  - Capillary leak syndrome [None]
